FAERS Safety Report 16377129 (Version 2)
Quarter: 2019Q3

REPORT INFORMATION
  Report Type: Report from Study
  Country: DE (occurrence: DE)
  Receive Date: 20190531
  Receipt Date: 20190722
  Transmission Date: 20191004
  Serious: Yes (Hospitalization)
  Sender: FDA-Public Use
  Company Number: DE-CELGENEUS-DEU-20190509568

PATIENT
  Age: 60 Year
  Sex: Female
  Weight: 81 kg

DRUGS (7)
  1. TRAMAL [Concomitant]
     Active Substance: TRAMADOL
     Indication: PAIN
     Route: 065
  2. EPIRUBICIN [Suspect]
     Active Substance: EPIRUBICIN
     Indication: BREAST CANCER
     Dosage: 174 MILLIGRAM
     Route: 041
     Dates: start: 20190509
  3. NOVALGIN [Concomitant]
     Indication: PAIN
     Route: 065
  4. CYCLOPHOSPHAMIDE. [Suspect]
     Active Substance: CYCLOPHOSPHAMIDE
     Indication: BREAST CANCER
     Dosage: 1160 MILLIGRAM
     Route: 041
     Dates: start: 20190509
  5. ABRAXANE [Suspect]
     Active Substance: PACLITAXEL
     Indication: BREAST CANCER
     Dosage: 195 MILLIGRAM
     Route: 041
     Dates: start: 20190306
  6. TILIDINE [Concomitant]
     Active Substance: TILIDINE
     Indication: PAIN
     Route: 065
  7. ABRAXANE [Suspect]
     Active Substance: PACLITAXEL
     Dosage: 195 MILLIGRAM
     Route: 041
     Dates: start: 20190425

REACTIONS (1)
  - Infection [Recovered/Resolved]

NARRATIVE: CASE EVENT DATE: 20190520
